FAERS Safety Report 6490421-8 (Version None)
Quarter: 2009Q4

REPORT INFORMATION
  Report Type: 
  Country: None (occurrence: None)
  Receive Date: 20091208
  Receipt Date: 20091201
  Transmission Date: 20100525
  Serious: Yes (Hospitalization)
  Sender: FDA-Public Use
  Company Number: 2009S1000465

PATIENT
  Sex: Female
  Weight: 61.3 kg

DRUGS (6)
  1. DARVOCET-N 100 [Suspect]
     Indication: PAIN
     Dosage: 100 MG;Q4H;PO
     Route: 048
  2. UNSPECIFIED DOUBLE BLIND DRUG [Suspect]
     Indication: COGNITIVE DISORDER
     Dosage: PO
     Route: 048
     Dates: start: 20091006
  3. WHOLE BRAIN RADIATION THERAPY [Suspect]
     Dates: start: 20091006, end: 20091022
  4. ATIVAN [Suspect]
     Dosage: 1 MG;QD;PO
     Route: 048
  5. DECADRON [Suspect]
     Dosage: 4 MG;QD
  6. PRILOSEC [Suspect]
     Dosage: 20 MG;BID

REACTIONS (5)
  - ACTIVITIES OF DAILY LIVING IMPAIRED [None]
  - DEHYDRATION [None]
  - FATIGUE [None]
  - LETHARGY [None]
  - WEIGHT DECREASED [None]
